FAERS Safety Report 14124271 (Version 2)
Quarter: 2017Q4

REPORT INFORMATION
  Report Type: Report from Study
  Country: None (occurrence: US)
  Receive Date: 20171025
  Receipt Date: 20171108
  Transmission Date: 20180321
  Serious: Yes (Hospitalization, Other)
  Sender: FDA-Public Use
  Company Number: US-ABBVIE-17K-163-1986459-00

PATIENT
  Sex: Male
  Weight: 95.34 kg

DRUGS (4)
  1. HUMIRA [Suspect]
     Active Substance: ADALIMUMAB
     Indication: PSORIASIS
     Route: 058
     Dates: start: 2012, end: 2013
  2. HUMIRA [Suspect]
     Active Substance: ADALIMUMAB
     Route: 058
     Dates: start: 201309
  3. COREG [Concomitant]
     Active Substance: CARVEDILOL
     Indication: HYPERTENSION
  4. COREG [Concomitant]
     Active Substance: CARVEDILOL
     Indication: HEART RATE INCREASED

REACTIONS (7)
  - Diverticulitis [Recovered/Resolved]
  - Weight decreased [Recovering/Resolving]
  - Vesical fistula [Recovered/Resolved]
  - Hepatitis C [Not Recovered/Not Resolved]
  - Colonic abscess [Recovered/Resolved]
  - Constipation [Not Recovered/Not Resolved]
  - Hepatic cirrhosis [Not Recovered/Not Resolved]

NARRATIVE: CASE EVENT DATE: 2013
